FAERS Safety Report 8565630-4 (Version None)
Quarter: 2012Q3

REPORT INFORMATION
  Report Type: 
  Country: None (occurrence: None)
  Receive Date: 20120803
  Receipt Date: 20120726
  Transmission Date: 20120928
  Serious: Yes (Other)
  Sender: FDA-Public Use
  Company Number: US-BRISTOL-MYERS SQUIBB COMPANY-16754236

PATIENT
  Age: 54 Year
  Sex: Male
  Weight: 102 kg

DRUGS (7)
  1. SYNTHROID [Concomitant]
  2. LYRICA [Suspect]
     Indication: FIBROMYALGIA
  3. CIMZIA [Suspect]
     Indication: DEPRESSION
  4. LORTAB [Suspect]
     Indication: PAIN
     Dosage: 1DF:10/500 UNITS NOS
  5. CRESTOR [Concomitant]
     Route: 048
  6. ZANAFLEX [Concomitant]
  7. AVALIDE [Suspect]
     Indication: HYPERTENSION
     Dosage: 1DF = 300/12.5 MG
     Route: 048
     Dates: start: 20110705

REACTIONS (10)
  - PROSTATIC DISORDER [None]
  - FALL [None]
  - CYST [None]
  - SYNCOPE [None]
  - LOSS OF CONSCIOUSNESS [None]
  - ARTHROPATHY [None]
  - FOOT FRACTURE [None]
  - OSTEONECROSIS [None]
  - LOWER LIMB FRACTURE [None]
  - CARPAL TUNNEL SYNDROME [None]
